FAERS Safety Report 7668239-X (Version None)
Quarter: 2011Q3

REPORT INFORMATION
  Report Type: 
  Country: None (occurrence: None)
  Receive Date: 20110808
  Receipt Date: 20110803
  Transmission Date: 20111222
  Serious: Yes (Death, Hospitalization)
  Sender: FDA-Public Use
  Company Number: DE-JNJFOC-20110801252

PATIENT
  Age: 89 Year
  Sex: Male

DRUGS (29)
  1. LORAZEPAM [Suspect]
     Indication: AGGRESSION
     Route: 048
     Dates: start: 20091013, end: 20091013
  2. LORAZEPAM [Suspect]
     Dosage: 1.5 TO 3.5 MG DAILY
     Route: 048
     Dates: start: 20091002, end: 20091005
  3. FUROSEMIDE [Concomitant]
     Route: 048
     Dates: start: 20090919, end: 20091010
  4. HALDOL [Suspect]
     Indication: HALLUCINATION
     Route: 048
     Dates: start: 20090930, end: 20091010
  5. HALDOL [Suspect]
     Indication: RESTLESSNESS
     Route: 048
     Dates: start: 20090930, end: 20091010
  6. TILIDIN [Suspect]
     Indication: PRODUCT USED FOR UNKNOWN INDICATION
     Dosage: 100 TO 8 MG DAILY
     Route: 048
     Dates: start: 20090916, end: 20091010
  7. LORAZEPAM [Suspect]
     Dosage: 1.5 TO 3.5 MG DAILY
     Route: 048
     Dates: start: 20091002, end: 20091005
  8. LORAZEPAM [Suspect]
     Indication: HALLUCINATION
     Route: 048
     Dates: start: 20091013, end: 20091013
  9. LORAZEPAM [Suspect]
     Indication: RESTLESSNESS
     Route: 048
     Dates: start: 20090923, end: 20090924
  10. LORAZEPAM [Suspect]
     Dosage: 4 TO 6.5 MG DAILY
     Route: 048
     Dates: start: 20091006, end: 20091012
  11. MESALAMINE [Concomitant]
     Route: 048
     Dates: start: 20091008, end: 20091010
  12. GLIMEPIRIDE [Concomitant]
     Route: 048
     Dates: end: 20090909
  13. DIPIDOLOR [Suspect]
     Route: 042
     Dates: start: 20091014, end: 20091014
  14. LORAZEPAM [Suspect]
     Route: 048
     Dates: start: 20090923, end: 20090924
  15. SIMVASTATIN [Concomitant]
     Route: 048
     Dates: end: 20090909
  16. K CL TAB [Concomitant]
     Route: 048
     Dates: start: 20090908, end: 20091010
  17. DIPIDOLOR [Suspect]
     Indication: PRODUCT USED FOR UNKNOWN INDICATION
     Route: 042
     Dates: start: 20091013, end: 20091013
  18. LORAZEPAM [Suspect]
     Dosage: 4 TO 6.5 MG DAILY
     Route: 048
     Dates: start: 20091006, end: 20091012
  19. LORAZEPAM [Suspect]
     Dosage: 1.5 TO 3.5 MG DAILY
     Route: 048
     Dates: start: 20091002, end: 20091005
  20. MESALAMINE [Concomitant]
     Route: 048
     Dates: end: 20091007
  21. AMLODIPINE [Concomitant]
     Route: 048
     Dates: end: 20091006
  22. FUROSEMIDE [Concomitant]
     Route: 048
     Dates: start: 20090908, end: 20090918
  23. TILIDIN [Suspect]
     Route: 048
     Dates: start: 20091011, end: 20091012
  24. HALDOL [Suspect]
     Indication: AGGRESSION
     Route: 048
     Dates: start: 20090930, end: 20091010
  25. TILIDIN [Suspect]
     Route: 048
     Dates: start: 20091013, end: 20091013
  26. LORAZEPAM [Suspect]
     Dosage: 4 TO 6.5 MG DAILY
     Route: 048
     Dates: start: 20091006, end: 20091012
  27. LORAZEPAM [Suspect]
     Route: 048
     Dates: start: 20090923, end: 20090924
  28. LORAZEPAM [Suspect]
     Route: 048
     Dates: start: 20091013, end: 20091013
  29. AMLODIPINE [Concomitant]
     Route: 048
     Dates: start: 20091007, end: 20091010

REACTIONS (3)
  - MYOTONIA [None]
  - DISEASE PROGRESSION [None]
  - LEFT VENTRICULAR FAILURE [None]
